FAERS Safety Report 16665316 (Version 1)
Quarter: 2019Q3

REPORT INFORMATION
  Report Type: Spontaneous
  Country: US (occurrence: US)
  Receive Date: 20190803
  Receipt Date: 20190803
  Transmission Date: 20191004
  Serious: No
  Sender: FDA-Public Use
  Company Number: US-MICRO LABS LIMITED-ML2019-01138

PATIENT
  Age: 42 Year
  Sex: Female
  Weight: 68 kg

DRUGS (1)
  1. SODIUM CROMOGLICATE [Suspect]
     Active Substance: CROMOLYN SODIUM
     Dosage: STRENGTH: 100 MG/5 ML?200 TO 400 MG PER DAY
     Dates: start: 201811, end: 201904

REACTIONS (5)
  - Headache [Recovered/Resolved]
  - Abdominal pain upper [Recovered/Resolved]
  - Drug hypersensitivity [Recovered/Resolved]
  - Myalgia [Recovered/Resolved]
  - Incorrect dose administered [Unknown]

NARRATIVE: CASE EVENT DATE: 201903
